FAERS Safety Report 21122143 (Version 2)
Quarter: 2023Q1

REPORT INFORMATION
  Report Type: Spontaneous
  Country: US (occurrence: US)
  Receive Date: 20220722
  Receipt Date: 20230330
  Transmission Date: 20230417
  Serious: No
  Sender: FDA-Public Use
  Company Number: US-SA-SAC20220720000343

PATIENT
  Age: 17 Year
  Sex: Female

DRUGS (1)
  1. DUPIXENT [Suspect]
     Active Substance: DUPILUMAB
     Dosage: 200 MG
     Route: 058
     Dates: start: 202202

REACTIONS (4)
  - Eye infection [Unknown]
  - Ocular hyperaemia [Unknown]
  - Eye discharge [Unknown]
  - Conjunctivitis viral [Unknown]

NARRATIVE: CASE EVENT DATE: 20220704
